FAERS Safety Report 9893195 (Version 4)
Quarter: 2014Q1

REPORT INFORMATION
  Report Type: Report from Study
  Country: CN (occurrence: CN)
  Receive Date: 20140213
  Receipt Date: 20140317
  Transmission Date: 20141002
  Serious: Yes (Death, Hospitalization)
  Sender: FDA-Public Use
  Company Number: CN-ROCHE-1347177

PATIENT
  Age: 78 Year
  Sex: Male
  Weight: 51 kg

DRUGS (10)
  1. OBINUTUZUMAB [Suspect]
     Indication: DIFFUSE LARGE B-CELL LYMPHOMA
     Dosage: LAST VOLUME : 250 ML, CONCENTRATION : 4 MG/ML, MOST RECENT DOSE : 09/JAN/2014
     Route: 042
     Dates: start: 20130826
  2. CYCLOPHOSPHAMIDE [Suspect]
     Indication: DIFFUSE LARGE B-CELL LYMPHOMA
     Dosage: LAST DOSE : 1155 MG, MOST RECENT DOSE OF ON 20/DEC/2013
     Route: 042
     Dates: start: 20130827
  3. DOXORUBICIN [Suspect]
     Indication: DIFFUSE LARGE B-CELL LYMPHOMA
     Dosage: LAST DOSE : 77 MG, MOST RECENT DOSE : 20/DEC/2013.
     Route: 042
     Dates: start: 20130827
  4. VINCRISTINE [Suspect]
     Indication: DIFFUSE LARGE B-CELL LYMPHOMA
     Dosage: LAST DOSE : 1.5 MG, MOST RECENT DOSE : 20/DEC/2013
     Route: 040
     Dates: start: 20130827
  5. PREDNISONE [Suspect]
     Indication: DIFFUSE LARGE B-CELL LYMPHOMA
     Dosage: LAST DOSE : 100 MG, MOST RECENT DOSE : 24/DEC/2013
     Route: 065
     Dates: start: 20130827
  6. GLYCYRRHIZIN [Concomitant]
     Route: 065
     Dates: start: 20130829
  7. POTASSIUM CITRATE [Concomitant]
     Route: 065
     Dates: start: 20130826
  8. ALLOPURINOL [Concomitant]
     Route: 065
     Dates: end: 20130827
  9. TRIMETAZIDINE DIHYDROCHLORIDE [Concomitant]
     Route: 065
     Dates: start: 20130828
  10. PANTOPRAZOLE SODIUM [Concomitant]
     Route: 065
     Dates: start: 20130829

REACTIONS (1)
  - Renal failure [Fatal]
